FAERS Safety Report 5197540-7 (Version None)
Quarter: 2006Q4

REPORT INFORMATION
  Report Type: 
  Country: None (occurrence: None)
  Receive Date: 20060926
  Receipt Date: 20060606
  Transmission Date: 20070319
  Serious: No
  Sender: FDA-Public Use
  Company Number: SP00881

PATIENT
  Sex: Male

DRUGS (1)
  1. XIFAXAN [Suspect]
     Dosage: 2 TABLETS, TID, UNK

REACTIONS (3)
  - ABDOMINAL PAIN [None]
  - ASTHENIA [None]
  - NAUSEA [None]
